FAERS Safety Report 11896729 (Version 1)
Quarter: 2016Q1

REPORT INFORMATION
  Report Type: Spontaneous
  Country: SE (occurrence: SE)
  Receive Date: 20160107
  Receipt Date: 20160107
  Transmission Date: 20160526
  Serious: Yes (Hospitalization)
  Sender: FDA-Public Use
  Company Number: SE-SA-2015SA222458

PATIENT
  Age: 2 Year
  Sex: Female
  Weight: 12.5 kg

DRUGS (4)
  1. CINACALCET HYDROCHLORIDE [Suspect]
     Active Substance: CINACALCET HYDROCHLORIDE
     Indication: HYPERCALCAEMIA
     Route: 065
  2. CINACALCET HYDROCHLORIDE [Suspect]
     Active Substance: CINACALCET HYDROCHLORIDE
     Indication: HYPERCALCAEMIA
     Route: 065
  3. VITAMIN D [Suspect]
     Active Substance: CHOLECALCIFEROL
     Route: 065
  4. VITAMIN D [Suspect]
     Active Substance: CHOLECALCIFEROL
     Route: 065

REACTIONS (12)
  - Nephrocalcinosis [Unknown]
  - Fatigue [Unknown]
  - Blood parathyroid hormone increased [Unknown]
  - Hypercalcaemia [Unknown]
  - Constipation [Unknown]
  - Hypercalciuria [Unknown]
  - Weight decreased [Unknown]
  - Inflammation [Unknown]
  - Kidney fibrosis [Unknown]
  - Renal impairment [Unknown]
  - Drug ineffective [Unknown]
  - Decreased appetite [Unknown]
